FAERS Safety Report 8715331 (Version 2)
Quarter: 2016Q1

REPORT INFORMATION
  Report Type: Spontaneous
  Country: US (occurrence: US)
  Receive Date: 20120809
  Receipt Date: 20160128
  Transmission Date: 20160526
  Serious: Yes (Other)
  Sender: FDA-Public Use
  Company Number: US-GLAXOSMITHKLINE-A0899167A

PATIENT
  Age: 56 Year
  Sex: Male

DRUGS (1)
  1. AVANDIA [Suspect]
     Active Substance: ROSIGLITAZONE MALEATE
     Indication: DIABETES MELLITUS
     Dosage: 4 MG, BID
     Route: 048
     Dates: start: 200005, end: 200909

REACTIONS (4)
  - Myocardial infarction [Not Recovered/Not Resolved]
  - Dyspnoea [Unknown]
  - Hypertension [Unknown]
  - Oedema [Not Recovered/Not Resolved]

NARRATIVE: CASE EVENT DATE: 200601
